FAERS Safety Report 9321508 (Version 7)
Quarter: 2016Q1

REPORT INFORMATION
  Report Type: Spontaneous
  Country: DE (occurrence: DE)
  Receive Date: 20130531
  Receipt Date: 20160222
  Transmission Date: 20160526
  Serious: Yes (Death, Hospitalization, Other)
  Sender: FDA-Public Use
  Company Number: DE-BRISTOL-MYERS SQUIBB COMPANY-18954933

PATIENT
  Age: 76 Year
  Sex: Male
  Weight: 80 kg

DRUGS (1)
  1. ELIQUIS [Suspect]
     Active Substance: APIXABAN
     Indication: CEREBROVASCULAR ACCIDENT PROPHYLAXIS
     Dosage: 5 MG, BID
     Route: 048
     Dates: start: 201303

REACTIONS (9)
  - Amnesia [Recovered/Resolved]
  - Haematoma [Unknown]
  - Visual impairment [Unknown]
  - Necrotising fasciitis [Unknown]
  - Surgery [Unknown]
  - Death [Fatal]
  - Thrombocytopenia [Unknown]
  - Dizziness [Unknown]
  - Sepsis [Unknown]

NARRATIVE: CASE EVENT DATE: 20130522
